FAERS Safety Report 6003965-X (Version None)
Quarter: 2008Q4

REPORT INFORMATION
  Report Type: 
  Country: None (occurrence: None)
  Receive Date: 20081216
  Receipt Date: 20081209
  Transmission Date: 20090506
  Serious: Yes (Hospitalization)
  Sender: FDA-Public Use
  Company Number: US-ASTRAZENECA-2008UW27683

PATIENT
  Age: 22 Year
  Sex: Male
  Weight: 74.8 kg

DRUGS (1)
  1. SEROQUEL [Suspect]
     Indication: BIPOLAR I DISORDER
     Dosage: 100MG CUT IN HALF
     Route: 048

REACTIONS (1)
  - MYOCARDIAL INFARCTION [None]
